FAERS Safety Report 18282361 (Version 2)
Quarter: 2020Q4

REPORT INFORMATION
  Report Type: Spontaneous
  Country: SK (occurrence: SK)
  Receive Date: 20200918
  Receipt Date: 20201014
  Transmission Date: 20210113
  Serious: Yes (Hospitalization, Other)
  Sender: FDA-Public Use
  Company Number: SK-GLAXOSMITHKLINE-SK2020EME185303

PATIENT
  Age: 27 Year
  Sex: Male

DRUGS (2)
  1. NUCALA [Suspect]
     Active Substance: MEPOLIZUMAB
     Indication: PRODUCT USED FOR UNKNOWN INDICATION
     Dosage: 100 MG, QD,1-2 INHALATIONS
     Route: 058
     Dates: start: 20190125
  2. NUCALA [Suspect]
     Active Substance: MEPOLIZUMAB
     Dosage: UNK
     Route: 058

REACTIONS (15)
  - Influenza [Unknown]
  - Septic shock [Unknown]
  - Asthma [Recovering/Resolving]
  - Dyspnoea [Unknown]
  - Pulpitis dental [Unknown]
  - Pneumonia [Recovering/Resolving]
  - Cardiac failure [Unknown]
  - Sepsis [Unknown]
  - Acute kidney injury [Unknown]
  - Hypotension [Unknown]
  - Tooth infection [Unknown]
  - Headache [Recovered/Resolved]
  - Tonsillitis [Unknown]
  - Inflammation [Unknown]
  - Respiratory failure [Recovering/Resolving]

NARRATIVE: CASE EVENT DATE: 20190125
